FAERS Safety Report 23571439 (Version 1)
Quarter: 2024Q1

REPORT INFORMATION
  Report Type: Report from Study
  Country: EG (occurrence: EG)
  Receive Date: 20240227
  Receipt Date: 20240227
  Transmission Date: 20240410
  Serious: No
  Sender: FDA-Public Use
  Company Number: EG-SANDOZ-SDZ2024EG017037

PATIENT
  Sex: Female
  Weight: 43.5 kg

DRUGS (1)
  1. OMNITROPE [Suspect]
     Active Substance: SOMATROPIN
     Indication: Short stature
     Dosage: 3.4 MG/ DAY OR 9 IU, START 2 MONTHS AGO
     Route: 058

REACTIONS (3)
  - Injection site pain [Not Recovered/Not Resolved]
  - Wrong device used [Not Recovered/Not Resolved]
  - Off label use [Not Recovered/Not Resolved]
